FAERS Safety Report 4301292-X (Version None)
Quarter: 2004Q1

REPORT INFORMATION
  Report Type: 
  Country: None (occurrence: None)
  Receive Date: 20040219
  Receipt Date: 20040211
  Transmission Date: 20041129
  Serious: Yes (Other)
  Sender: FDA-Public Use
  Company Number: NL-JNJFOC-20040202595

PATIENT
  Age: 58 Year
  Sex: Male

DRUGS (4)
  1. ITRACONAZOLE [Suspect]
     Indication: FUNGAL INFECTION
     Dosage: 100 MG, 2 IN 1 DAY, ORAL
     Route: 048
     Dates: start: 20040119, end: 20040122
  2. ALUMINIUM ACETATE (ALUMINIUM ACETATE) [Concomitant]
  3. MICONAZOLE (MICONAZOLE) CREAM [Concomitant]
  4. ZINC OXIDE (ZINC OXIDE) [Concomitant]

REACTIONS (4)
  - ORAL INFECTION [None]
  - PHARYNGEAL OEDEMA [None]
  - PHARYNGITIS [None]
  - UVULITIS [None]
